FAERS Safety Report 20870519 (Version 4)
Quarter: 2022Q4

REPORT INFORMATION
  Report Type: Report from Study
  Country: US (occurrence: US)
  Receive Date: 20220525
  Receipt Date: 20221216
  Transmission Date: 20230112
  Serious: No
  Sender: FDA-Public Use
  Company Number: US-KYOWAKIRIN-2022BKK007670

PATIENT

DRUGS (2)
  1. CRYSVITA [Suspect]
     Active Substance: BUROSUMAB-TWZA
     Indication: Hereditary hypophosphataemic rickets
     Dosage: 150 MG, 1X/4 WEEKS
     Route: 065
     Dates: start: 20200304
  2. CRYSVITA [Suspect]
     Active Substance: BUROSUMAB-TWZA
     Dosage: 150 MG, 1X/4 WEEKS
     Route: 065
     Dates: start: 20200407

REACTIONS (2)
  - COVID-19 [Unknown]
  - Ligament operation [Unknown]
